FAERS Safety Report 4716342-6 (Version None)
Quarter: 2005Q3

REPORT INFORMATION
  Report Type: 
  Country: None (occurrence: None)
  Receive Date: 20050711
  Receipt Date: 20050406
  Transmission Date: 20060218
  Serious: Yes (Other)
  Sender: FDA-Public Use
  Company Number: ENTC2005-0099

PATIENT
  Age: 52 Year
  Sex: Female

DRUGS (1)
  1. STALEVO 100 [Suspect]
     Indication: PARKINSON'S DISEASE
     Dosage: 100 MG, QID, ORAL
     Route: 048
     Dates: start: 20041001

REACTIONS (2)
  - FATIGUE [None]
  - FEELING ABNORMAL [None]
